FAERS Safety Report 12318378 (Version 3)
Quarter: 2016Q3

REPORT INFORMATION
  Report Type: Report from Study
  Country: BR (occurrence: BR)
  Receive Date: 20160429
  Receipt Date: 20160809
  Transmission Date: 20161109
  Serious: Yes (Death, Hospitalization)
  Sender: FDA-Public Use
  Company Number: PHHY2016BR045355

PATIENT
  Sex: Male
  Weight: 94 kg

DRUGS (1)
  1. EXJADE [Suspect]
     Active Substance: DEFERASIROX
     Indication: MYELODYSPLASTIC SYNDROME
     Dosage: 2000 MG (20 MG/KG), QD
     Route: 048

REACTIONS (6)
  - Multiple organ dysfunction syndrome [Fatal]
  - Pyrexia [Unknown]
  - Bacterial infection [Unknown]
  - Vomiting [Not Recovered/Not Resolved]
  - Decreased immune responsiveness [Unknown]
  - Nausea [Not Recovered/Not Resolved]
